FAERS Safety Report 24823054 (Version 1)
Quarter: 2025Q1

REPORT INFORMATION
  Report Type: Spontaneous
  Country: PL (occurrence: PL)
  Receive Date: 20250109
  Receipt Date: 20250109
  Transmission Date: 20250408
  Serious: Yes (Other)
  Sender: LEO PHARM
  Company Number: None

PATIENT
  Age: 29 Year
  Sex: Female
  Weight: 63 kg

DRUGS (2)
  1. PROTOPIC [Suspect]
     Active Substance: TACROLIMUS
     Indication: Seborrhoeic dermatitis
     Dosage: THERAPY ONGOING; APPLY A LITTLE OINTMENT TO THE SKIN TWICE A DAY?PROTOPIC 0.1 % OINTMENT
     Dates: start: 20191216
  2. PROTOPIC [Suspect]
     Active Substance: TACROLIMUS
     Indication: Seborrhoeic dermatitis
     Dosage: THERAPY ONGOING; APPLY A LITTLE OINTMENT TO THE SKIN TWICE A DAY?PROTOPIC 0.1 % OINTMENT
     Dates: start: 20191216

REACTIONS (6)
  - Palpitations [Recovered/Resolved]
  - Product use in unapproved indication [Not Recovered/Not Resolved]
  - Skin burning sensation [Recovered/Resolved]
  - Dyspnoea [Recovered/Resolved]
  - Erythema [Recovered/Resolved]
  - Expired product administered [Not Recovered/Not Resolved]

NARRATIVE: CASE EVENT DATE: 20191216
